FAERS Safety Report 7818057-4 (Version None)
Quarter: 2011Q4

REPORT INFORMATION
  Report Type: 
  Country: None (occurrence: None)
  Receive Date: 20111017
  Receipt Date: 20111013
  Transmission Date: 20120403
  Serious: No
  Sender: FDA-Public Use
  Company Number: NZ-PFIZER INC-2011220843

PATIENT
  Age: 45 Year
  Sex: Female
  Weight: 57 kg

DRUGS (1)
  1. VARENICLINE TARTRATE [Suspect]
     Dosage: 1 DF, 2X/DAY
     Route: 048
     Dates: start: 20110910

REACTIONS (5)
  - EYE PAIN [None]
  - MYALGIA [None]
  - HYPERSENSITIVITY [None]
  - EYE SWELLING [None]
  - VISION BLURRED [None]
